FAERS Safety Report 14333500 (Version 2)
Quarter: 2018Q1

REPORT INFORMATION
  Report Type: Spontaneous
  Country: JP (occurrence: JP)
  Receive Date: 20171228
  Receipt Date: 20180105
  Transmission Date: 20180509
  Serious: Yes (Life-Threatening, Other)
  Sender: FDA-Public Use
  Company Number: JP-SUN PHARMACEUTICAL INDUSTRIES LTD-2017RR-158142

PATIENT
  Age: 18 Year
  Sex: Male

DRUGS (2)
  1. CARBOPLATIN. [Suspect]
     Active Substance: CARBOPLATIN
     Indication: GERM CELL CANCER
     Dosage: 450 MG/M2, STANDARD DOSE, ON DAY 1 ; CYCLICAL
     Route: 065
  2. ETOPOSIDE. [Suspect]
     Active Substance: ETOPOSIDE
     Indication: GERM CELL CANCER
     Dosage: 150 MG/M2, STANDARD DOSE, ON DAYS 1 TO 3 ; CYCLICAL
     Route: 065

REACTIONS (5)
  - Neutropenia [Recovered/Resolved]
  - Anaemia [Recovered/Resolved]
  - Pancytopenia [Unknown]
  - Drug effect incomplete [Unknown]
  - Thrombocytopenia [Recovered/Resolved]
